FAERS Safety Report 6189485-0 (Version None)
Quarter: 2009Q2

REPORT INFORMATION
  Report Type: 
  Country: None (occurrence: None)
  Receive Date: 20090501
  Receipt Date: 20090501
  Transmission Date: 20091009
  Serious: Yes (Other)
  Sender: FDA-Public Use
  Company Number: None

PATIENT
  Age: 43 Year
  Sex: Female
  Weight: 79.3795 kg

DRUGS (1)
  1. SUPERBLOCK WITH TITANIUM DIOXIDE SPF 45 BULL FROG [Suspect]
     Dosage: APPLY LIBERALLY TOP
     Route: 061
     Dates: start: 20090416, end: 20090416

REACTIONS (5)
  - DISCOMFORT [None]
  - ERYTHEMA [None]
  - PRURITUS [None]
  - SKIN EXFOLIATION [None]
  - SKIN WARM [None]
